FAERS Safety Report 7083129-1 (Version None)
Quarter: 2010Q4

REPORT INFORMATION
  Report Type: 
  Country: None (occurrence: None)
  Receive Date: 20101104
  Receipt Date: 20101028
  Transmission Date: 20110411
  Serious: Yes (Other)
  Sender: FDA-Public Use
  Company Number: TR-CELGENEUS-161-C5013-10102784

PATIENT
  Sex: Female

DRUGS (1)
  1. CC-5013 [Suspect]
     Indication: MYELOFIBROSIS
     Route: 048

REACTIONS (2)
  - ACUTE LEUKAEMIA [None]
  - MYELOFIBROSIS [None]
